FAERS Safety Report 16318126 (Version 3)
Quarter: 2019Q2

REPORT INFORMATION
  Report Type: Report from Study
  Country: None (occurrence: US)
  Receive Date: 20190516
  Receipt Date: 20190621
  Transmission Date: 20190711
  Serious: Yes (Death, Hospitalization, Other)
  Sender: FDA-Public Use
  Company Number: US-ABBVIE-19K-163-2784798-00

PATIENT
  Age: 62 Year
  Sex: Female
  Weight: 63.11 kg

DRUGS (5)
  1. ALLOPURINOL. [Concomitant]
     Active Substance: ALLOPURINOL
     Indication: PROPHYLAXIS
  2. VENCLEXTA [Suspect]
     Active Substance: VENETOCLAX
     Route: 048
     Dates: start: 20190327, end: 2019
  3. VENCLEXTA [Suspect]
     Active Substance: VENETOCLAX
     Indication: CHRONIC LYMPHOCYTIC LEUKAEMIA
     Route: 048
     Dates: start: 20190306, end: 20190312
  4. VENCLEXTA [Suspect]
     Active Substance: VENETOCLAX
     Route: 048
     Dates: start: 20190313, end: 20190319
  5. VENCLEXTA [Suspect]
     Active Substance: VENETOCLAX
     Route: 048
     Dates: start: 20190320, end: 20190326

REACTIONS (6)
  - Dizziness [Unknown]
  - Fall [Recovered/Resolved]
  - Upper respiratory tract infection [Recovered/Resolved]
  - Confusional state [Unknown]
  - Toxic leukoencephalopathy [Fatal]
  - Cough [Recovered/Resolved]

NARRATIVE: CASE EVENT DATE: 20190410
